FAERS Safety Report 24113357 (Version 1)
Quarter: 2024Q3

REPORT INFORMATION
  Report Type: Spontaneous
  Country: CA (occurrence: CA)
  Receive Date: 20240719
  Receipt Date: 20240719
  Transmission Date: 20241016
  Serious: Yes (Life-Threatening)
  Sender: TEVA
  Company Number: CA-TEVA-VS-3221274

PATIENT
  Age: 79 Year
  Sex: Female

DRUGS (1)
  1. OXALIPLATIN [Suspect]
     Active Substance: OXALIPLATIN
     Indication: Product used for unknown indication
     Route: 065

REACTIONS (5)
  - Dyspnoea [Recovered/Resolved]
  - Hypoaesthesia [Recovered/Resolved]
  - Paraesthesia [Recovered/Resolved]
  - Stridor [Recovered/Resolved]
  - Chest discomfort [Recovered/Resolved]
